FAERS Safety Report 8148585-6 (Version None)
Quarter: 2012Q1

REPORT INFORMATION
  Report Type: 
  Country: None (occurrence: None)
  Receive Date: 20120218
  Receipt Date: 20110617
  Transmission Date: 20120608
  Serious: No
  Sender: FDA-Public Use
  Company Number: US-ALLERGAN-1108295US

PATIENT
  Age: 50 Year
  Sex: Female

DRUGS (3)
  1. BOTOX COSMETIC [Suspect]
     Dosage: 5 UNITS, SINGLE
     Dates: start: 20090813, end: 20090813
  2. BOTOX COSMETIC [Suspect]
     Indication: SKIN WRINKLING
     Dosage: 20 UNITS, SINGLE
     Dates: start: 20091106, end: 20091106
  3. BOTOX COSMETIC [Suspect]
     Dosage: 20 UNITS, SINGLE
     Dates: start: 20090731, end: 20090731

REACTIONS (2)
  - WRONG TECHNIQUE IN DRUG USAGE PROCESS [None]
  - THERAPEUTIC RESPONSE DECREASED [None]
